FAERS Safety Report 16827697 (Version 1)
Quarter: 2019Q3

REPORT INFORMATION
  Report Type: Report from Study
  Country: US (occurrence: US)
  Receive Date: 20190919
  Receipt Date: 20190919
  Transmission Date: 20191005
  Serious: Yes (Other)
  Sender: FDA-Public Use
  Company Number: US-ACTELION-A-US2019-195531

PATIENT
  Age: 22 Year
  Sex: Female
  Weight: 61.22 kg

DRUGS (10)
  1. TRACLEER [Suspect]
     Active Substance: BOSENTAN
     Indication: PULMONARY ARTERIAL HYPERTENSION
     Dosage: 125 MG, BID
     Route: 048
  2. SILDENAFIL CITRATE. [Suspect]
     Active Substance: SILDENAFIL CITRATE
     Dosage: 20 MG, TID
     Route: 065
  3. VENTAVIS [Concomitant]
     Active Substance: ILOPROST
     Indication: PULMONARY ARTERIAL HYPERTENSION
     Dosage: UNK
     Route: 055
     Dates: start: 200702
  4. COUMADIN [Concomitant]
     Active Substance: WARFARIN SODIUM
     Indication: THROMBOSIS
     Dosage: 6 MG, QD
  5. KEFLEX [Concomitant]
     Active Substance: CEPHALEXIN
  6. ZYRTEC [Concomitant]
     Active Substance: CETIRIZINE HYDROCHLORIDE
  7. COUMADIN [Concomitant]
     Active Substance: WARFARIN SODIUM
     Dosage: 5 UNK
  8. ZITHROMAX [Concomitant]
     Active Substance: AZITHROMYCIN DIHYDRATE
     Indication: COUGH
  9. ASA [Concomitant]
     Active Substance: ASPIRIN
     Dosage: 81 MG, QD
     Route: 048
  10. SILDENAFIL CITRATE. [Suspect]
     Active Substance: SILDENAFIL CITRATE
     Indication: PRODUCT USED FOR UNKNOWN INDICATION
     Dosage: 50 MG, TID
     Route: 065

REACTIONS (24)
  - Cyanosis [Unknown]
  - Menstruation irregular [Unknown]
  - Transplant evaluation [Unknown]
  - Pyrexia [Unknown]
  - Right ventricular systolic pressure increased [Unknown]
  - Productive cough [Unknown]
  - Cough [Unknown]
  - Cardiac murmur [Unknown]
  - Oxygen saturation decreased [Unknown]
  - Depression [Unknown]
  - Right-to-left cardiac shunt [Unknown]
  - Atrial septal defect [Unknown]
  - Pulmonary veno-occlusive disease [Unknown]
  - Clubbing [Unknown]
  - Respiratory tract congestion [Unknown]
  - Hypophagia [Unknown]
  - Cardiomegaly [Unknown]
  - Blood pressure decreased [Unknown]
  - Rash [Unknown]
  - Pharyngitis [Recovered/Resolved]
  - Oropharyngeal pain [Unknown]
  - Pulmonary arterial hypertension [Unknown]
  - Thrombosis [Unknown]
  - Tricuspid valve incompetence [Unknown]

NARRATIVE: CASE EVENT DATE: 2007
